FAERS Safety Report 10479876 (Version 1)
Quarter: 2014Q3

REPORT INFORMATION
  Report Type: Spontaneous
  Country: US (occurrence: None)
  Receive Date: 20140926
  Receipt Date: 20140926
  Transmission Date: 20150326
  Serious: Yes (Life-Threatening)
  Sender: FDA-Public Use
  Company Number: None

PATIENT
  Age: 20 Year
  Sex: Female
  Weight: 54.89 kg

DRUGS (2)
  1. SERTRALINE [Suspect]
     Active Substance: SERTRALINE HYDROCHLORIDE
     Indication: DEPRESSION
     Dosage: 1/2 - 1 TAB DAILY
     Route: 048
     Dates: start: 20140915, end: 20140924
  2. SERTRALINE [Suspect]
     Active Substance: SERTRALINE HYDROCHLORIDE
     Indication: ANXIETY
     Dosage: 1/2 - 1 TAB DAILY
     Route: 048
     Dates: start: 20140915, end: 20140924

REACTIONS (2)
  - Condition aggravated [None]
  - Suicidal ideation [None]

NARRATIVE: CASE EVENT DATE: 20140924
